FAERS Safety Report 6034619-1 (Version None)
Quarter: 2009Q1

REPORT INFORMATION
  Report Type: 
  Country: None (occurrence: None)
  Receive Date: 20090112
  Receipt Date: 20081229
  Transmission Date: 20090719
  Serious: Yes (Other)
  Sender: FDA-Public Use
  Company Number: CZ-ROCHE-606464

PATIENT
  Age: 40 Year
  Sex: Male

DRUGS (2)
  1. PEG-INTERFERON ALFA 2A (RO 25-8310) [Suspect]
     Dosage: DISCONTINUED AT WEEK 14
     Route: 065
     Dates: start: 20060601
  2. RIBAVIRIN [Suspect]
     Dosage: DISCONTINUED AT WEEK 4
     Route: 065
     Dates: start: 20060601

REACTIONS (2)
  - ANAEMIA [None]
  - TRANSPLANT REJECTION [None]
